FAERS Safety Report 17676072 (Version 1)
Quarter: 2020Q2

REPORT INFORMATION
  Report Type: Spontaneous
  Country: IT (occurrence: IT)
  Receive Date: 20200416
  Receipt Date: 20200416
  Transmission Date: 20200714
  Serious: Yes (Death, Other)
  Sender: FDA-Public Use
  Company Number: IT-SHIRE-IT202013362

PATIENT

DRUGS (1)
  1. CEPROTIN [Suspect]
     Active Substance: PROTEIN C
     Indication: PRODUCT USED FOR UNKNOWN INDICATION
     Dosage: UNK
     Route: 065

REACTIONS (2)
  - Pulmonary artery thrombosis [Fatal]
  - Drug resistance [Fatal]
